FAERS Safety Report 6687682-9 (Version None)
Quarter: 2010Q2

REPORT INFORMATION
  Report Type: 
  Country: None (occurrence: None)
  Receive Date: 20100415
  Receipt Date: 20100401
  Transmission Date: 20101027
  Serious: Yes (Hospitalization, Other)
  Sender: FDA-Public Use
  Company Number: 7000095

PATIENT
  Age: 32 Year
  Sex: Female

DRUGS (4)
  1. REBIF [Suspect]
     Indication: MULTIPLE SCLEROSIS
     Dosage: 3 IN 1 WK
     Dates: start: 20031008, end: 20100301
  2. CLONAZEPAM [Concomitant]
  3. PERIDAL (DOMPERIDONE) [Concomitant]
  4. CELESTAMINE (CELESTAMINE /00252801/) [Concomitant]

REACTIONS (5)
  - GALLBLADDER DISORDER [None]
  - HEPATIC STEATOSIS [None]
  - NAUSEA [None]
  - NEPHROLITHIASIS [None]
  - UTERINE LEIOMYOMA [None]
